FAERS Safety Report 9095714 (Version 3)
Quarter: 2013Q4

REPORT INFORMATION
  Report Type: Spontaneous
  Country: GB (occurrence: GB)
  Receive Date: 20130220
  Receipt Date: 20131007
  Transmission Date: 20140711
  Serious: Yes (Disabling, Other)
  Sender: FDA-Public Use
  Company Number: GB-ACCORD-016454

PATIENT
  Age: 73 Year
  Sex: Male
  Weight: 80.9 kg

DRUGS (8)
  1. ASPIRIN [Concomitant]
     Dates: start: 20121216
  2. BENDROFLUMETHIAZIDE [Concomitant]
  3. ATENOLOL [Concomitant]
  4. CLOPIDOGREL [Concomitant]
     Dates: start: 20121216
  5. DAKTARIN [Suspect]
     Indication: ORAL FUNGAL INFECTION
     Dosage: APPLIED TO INFECTED AREA AS PRESCRIBED
     Route: 061
     Dates: start: 20120713, end: 20120720
  6. SIMVASTATIN [Interacting]
     Indication: PRODUCT USED FOR UNKNOWN INDICATION
  7. DIPYRIDAMOLE [Concomitant]
     Dates: start: 20121215
  8. RAMIPRIL [Concomitant]

REACTIONS (2)
  - Ocular myasthenia [Not Recovered/Not Resolved]
  - Labelled drug-drug interaction medication error [Unknown]
